FAERS Safety Report 7489099-6 (Version None)
Quarter: 2011Q2

REPORT INFORMATION
  Report Type: 
  Country: None (occurrence: None)
  Receive Date: 20110518
  Receipt Date: 20110513
  Transmission Date: 20111010
  Serious: Yes (Other)
  Sender: FDA-Public Use
  Company Number: US-PFIZER INC-2011063276

PATIENT
  Sex: Female

DRUGS (2)
  1. EFFEXOR [Suspect]
     Indication: DEPRESSION
     Dosage: 75 MG, UNK
  2. VENLAFAXINE HCL [Suspect]
     Dosage: UNK

REACTIONS (3)
  - DIVERTICULITIS [None]
  - COLITIS [None]
  - GASTROOESOPHAGEAL REFLUX DISEASE [None]
